FAERS Safety Report 11314254 (Version 1)
Quarter: 2015Q3

REPORT INFORMATION
  Report Type: Spontaneous
  Country: RU (occurrence: RU)
  Receive Date: 20150727
  Receipt Date: 20150727
  Transmission Date: 20151125
  Serious: Yes (Other)
  Sender: FDA-Public Use
  Company Number: RU-GLAXOSMITHKLINE-RU2015GSK105658

PATIENT
  Sex: Female

DRUGS (3)
  1. LAMIVUDINE. [Suspect]
     Active Substance: LAMIVUDINE
     Indication: HIV INFECTION
     Dosage: UNK
     Dates: start: 201506
  2. KALETRA [Suspect]
     Active Substance: LOPINAVIR\RITONAVIR
     Indication: HIV INFECTION
     Dosage: UNK
     Dates: start: 201506
  3. NIKAVIR [Suspect]
     Active Substance: PHOSPHAZIDE
     Indication: HIV INFECTION
     Dosage: UNK
     Dates: start: 201506

REACTIONS (6)
  - Nausea [Recovering/Resolving]
  - Dizziness [Recovering/Resolving]
  - Vomiting [Recovering/Resolving]
  - Decreased appetite [Recovering/Resolving]
  - Insomnia [Recovering/Resolving]
  - Loss of consciousness [Recovering/Resolving]

NARRATIVE: CASE EVENT DATE: 201506
